FAERS Safety Report 8537648-9 (Version None)
Quarter: 2012Q3

REPORT INFORMATION
  Report Type: 
  Country: None (occurrence: None)
  Receive Date: 20120725
  Receipt Date: 20120718
  Transmission Date: 20120928
  Serious: Yes (Hospitalization)
  Sender: FDA-Public Use
  Company Number: PHHY2011US64712

PATIENT
  Sex: Female
  Weight: 97.052 kg

DRUGS (18)
  1. ATIVAN [Concomitant]
     Indication: CONVULSION
     Dosage: 0.5 MG, PRN
     Route: 048
  2. HEP-LOCK [Concomitant]
     Dosage: 100 UNIT/ML
  3. ASCORBIC ACID [Concomitant]
     Dosage: 500 MG, DAILY
     Route: 048
  4. SODIUM PHOSPHATES [Concomitant]
     Indication: CONSTIPATION
     Dosage: UNK UKN, PRN
     Route: 054
  5. LOVENOX [Concomitant]
     Indication: ANTICOAGULANT THERAPY
     Dosage: 40 MG, DAILY
  6. NEURONTIN [Concomitant]
     Indication: NEUROPATHY PERIPHERAL
     Dosage: 100 MG, TID
  7. VESICARE [Concomitant]
     Indication: NEUROGENIC BLADDER
     Dosage: 10 MG, DAILY
     Route: 048
  8. GILENYA [Suspect]
     Indication: MULTIPLE SCLEROSIS
     Dosage: 0.5 MG, QD
     Route: 048
     Dates: start: 20110405, end: 20110715
  9. LIORESAL [Concomitant]
     Indication: MUSCLE SPASMS
     Dosage: 30 MG, BID
     Route: 048
  10. MULTIPLE VITAMIN [Concomitant]
     Indication: NUTRITIONAL SUPPORT
     Dosage: 1 DF, DAILY
     Route: 048
  11. NEFAZODONE HCL [Concomitant]
     Indication: DEPRESSION
     Dosage: 100 MG, QD
     Route: 048
  12. FAMPRIDINE [Concomitant]
     Indication: GAIT DISTURBANCE
     Dosage: 10 MG, BID
     Route: 048
     Dates: start: 20100323
  13. DULCOLAX [Concomitant]
     Indication: CONSTIPATION
     Dosage: 5 MG, QW
     Route: 048
  14. POTASSIUM CHLORIDE [Concomitant]
     Dosage: 20 %, 40 MEQ/15 ML
  15. SALINE [Concomitant]
     Dosage: 0.9 %, UNK
  16. CALCIUM CARBONATE W/VITAMIN D NOS [Concomitant]
     Indication: NUTRITIONAL SUPPORT
     Dosage: UNK UKN, BID
     Route: 048
  17. AMBIEN [Concomitant]
     Indication: SLEEP DISORDER
     Dosage: 5 MG, PRN
     Route: 048
  18. FERROUS SULFATE TAB [Concomitant]
     Indication: NUTRITIONAL SUPPORT
     Dosage: 325 MG, DAILY
     Route: 048

REACTIONS (18)
  - URINARY TRACT INFECTION [None]
  - BLOOD CALCIUM DECREASED [None]
  - HEPATOTOXICITY [None]
  - ABDOMINAL PAIN [None]
  - PERONEAL NERVE PALSY [None]
  - ASPARTATE AMINOTRANSFERASE INCREASED [None]
  - BLOOD ALBUMIN DECREASED [None]
  - JAUNDICE [None]
  - BLOOD BILIRUBIN INCREASED [None]
  - ASTHENIA [None]
  - BLOOD ALKALINE PHOSPHATASE INCREASED [None]
  - HYPOTONIA [None]
  - FATIGUE [None]
  - YELLOW SKIN [None]
  - MUSCULAR WEAKNESS [None]
  - SENSORY DISTURBANCE [None]
  - ALANINE AMINOTRANSFERASE INCREASED [None]
  - PROTEIN TOTAL DECREASED [None]
